FAERS Safety Report 16377963 (Version 1)
Quarter: 2019Q2

REPORT INFORMATION
  Report Type: Spontaneous
  Country: FR (occurrence: FR)
  Receive Date: 20190531
  Receipt Date: 20190531
  Transmission Date: 20190711
  Serious: Yes (Other)
  Sender: FDA-Public Use
  Company Number: FR-MYLANLABS-2019M1050215

PATIENT
  Age: 71 Year
  Sex: Female
  Weight: 44 kg

DRUGS (5)
  1. SERETIDE [Concomitant]
     Active Substance: FLUTICASONE PROPIONATE\SALMETEROL XINAFOATE
     Dosage: UNK
  2. SPIRIVA [Concomitant]
     Active Substance: TIOTROPIUM BROMIDE MONOHYDRATE
     Dosage: UNK
  3. MORPHINE [Suspect]
     Active Substance: MORPHINE
     Indication: ANAESTHESIA
     Dosage: 50 MICROGRAM, TOTAL
     Route: 037
     Dates: start: 20181008, end: 20181008
  4. SUFENTANIL [Suspect]
     Active Substance: SUFENTANIL
     Indication: ANAESTHESIA
     Dosage: 2.5 MICROGRAM, TOTAL
     Route: 037
     Dates: start: 20181008, end: 20181008
  5. BUPIVACAINE. [Suspect]
     Active Substance: BUPIVACAINE
     Indication: ANAESTHESIA
     Dosage: 12 MILLIGRAM, TOTAL
     Route: 037
     Dates: start: 20181008, end: 20181008

REACTIONS (1)
  - Therapeutic product effect delayed [Recovered/Resolved]

NARRATIVE: CASE EVENT DATE: 20181008
